FAERS Safety Report 4831942-0 (Version None)
Quarter: 2005Q4

REPORT INFORMATION
  Report Type: 
  Country: None (occurrence: None)
  Receive Date: 20051118
  Receipt Date: 20050112
  Transmission Date: 20060501
  Serious: Yes (Hospitalization, Other)
  Sender: FDA-Public Use
  Company Number: US-ABBOTT-05P-163-0286701-00

PATIENT
  Sex: Female
  Weight: 85.352 kg

DRUGS (36)
  1. TARKA [Suspect]
     Indication: PERIPHERAL VASCULAR DISORDER
     Dosage: 4/240 MG
     Route: 048
     Dates: start: 20040908, end: 20040921
  2. TARKA [Suspect]
     Dosage: 02/180
     Dates: start: 20040922, end: 20041005
  3. TARKA [Suspect]
     Dosage: 04/240
     Dates: start: 20041006, end: 20041019
  4. TARKA [Suspect]
     Dosage: 04/240
     Dates: start: 20041020, end: 20041104
  5. TARKA [Suspect]
     Dosage: 04/240
     Dates: start: 20041020, end: 20041104
  6. TARKA [Suspect]
     Dosage: 04/240
     Dates: start: 20041105, end: 20041130
  7. TARKA [Suspect]
     Dosage: 04/240
     Dates: start: 20041201, end: 20050107
  8. TARKA [Suspect]
     Dates: start: 20050113
  9. INSULIN LISPRO [Concomitant]
     Indication: DIABETES MELLITUS
     Dosage: 18-20 UNITS
     Dates: start: 19940101
  10. INSULIN GLARGINE [Concomitant]
     Indication: DIABETES MELLITUS
     Dosage: 38-40 UNITS
     Dates: start: 19940101
  11. OMEPRAZOLE [Concomitant]
     Indication: GASTROOESOPHAGEAL REFLUX DISEASE
     Dates: start: 19990101
  12. ZOCOR [Concomitant]
     Indication: HYPERCHOLESTEROLAEMIA
     Dates: start: 20031208, end: 20050329
  13. QUINAPRIL HCL [Concomitant]
     Indication: HYPERTENSION
     Dates: start: 20010101, end: 20040809
  14. CLONIDINE [Concomitant]
     Indication: HYPERTENSION
     Dates: start: 19990101, end: 20040809
  15. HYZAAR [Concomitant]
     Indication: HYPERTENSION
     Dosage: 100/25 MILLIGRAMS
     Dates: start: 20031208, end: 20040809
  16. HYZAAR [Concomitant]
     Indication: OEDEMA PERIPHERAL
  17. ASPIRIN [Concomitant]
     Indication: PROPHYLAXIS
     Dates: start: 20040101
  18. PIOGLITAZONE HCL [Concomitant]
     Indication: DRUG USE FOR UNKNOWN INDICATION
     Dates: start: 20040901, end: 20041221
  19. ZYMAR EYE DROPS [Concomitant]
     Indication: CATARACT OPERATION
     Dates: start: 20040914, end: 20041012
  20. PRED FORTE [Concomitant]
     Indication: CATARACT OPERATION
     Dates: start: 20040914, end: 20041012
  21. HITINEX HC SYRUP [Concomitant]
     Indication: COUGH
     Dosage: 1-2 TSP
     Dates: start: 20041025, end: 20041111
  22. AZITHROMYCIN [Concomitant]
     Indication: BRONCHITIS
     Dates: start: 20041105, end: 20041113
  23. LISINOPRIL [Concomitant]
     Indication: DRUG USE FOR UNKNOWN INDICATION
     Dates: start: 20040810, end: 20040824
  24. LISINOPRIL [Concomitant]
     Dates: start: 20040825, end: 20040907
  25. TORSEMIDE [Concomitant]
     Indication: DRUG USE FOR UNKNOWN INDICATION
     Dates: start: 20040810, end: 20040824
  26. TORSEMIDE [Concomitant]
     Dates: start: 20040825, end: 20040907
  27. TORSEMIDE [Concomitant]
     Dates: start: 20041020, end: 20041104
  28. TORSEMIDE [Concomitant]
     Dates: start: 20041105, end: 20041130
  29. TORSEMIDE [Concomitant]
     Dates: start: 20041201
  30. TORSEMIDE [Concomitant]
     Dates: start: 20040922, end: 20041005
  31. TORSEMIDE [Concomitant]
     Dates: start: 20041006, end: 20041019
  32. CLONIDINE [Concomitant]
     Indication: DRUG USE FOR UNKNOWN INDICATION
     Dates: start: 20041025, end: 20041104
  33. CLONIDINE [Concomitant]
     Dates: start: 20041105, end: 20041130
  34. CLONIDINE [Concomitant]
     Dates: start: 20041201
  35. WARFARIN SODIUM [Concomitant]
     Indication: DRUG USE FOR UNKNOWN INDICATION
  36. ZETIA [Concomitant]
     Indication: HYPERCHOLESTEROLAEMIA
     Dates: start: 20050330

REACTIONS (1)
  - DEEP VEIN THROMBOSIS [None]
